FAERS Safety Report 9349886 (Version 1)
Quarter: 2013Q2

REPORT INFORMATION
  Report Type: Spontaneous
  Country: NL (occurrence: NL)
  Receive Date: 20130614
  Receipt Date: 20130614
  Transmission Date: 20140414
  Serious: Yes (Other)
  Sender: FDA-Public Use
  Company Number: NL-009507513-1306NLD005285

PATIENT
  Age: 63 Year
  Sex: Male

DRUGS (2)
  1. AERIUS [Suspect]
     Indication: URTICARIA
     Dosage: 4 TABLETS DAILY
     Route: 048
     Dates: start: 20130607
  2. AERIUS [Suspect]
     Indication: PRURITUS

REACTIONS (2)
  - Overdose [Unknown]
  - Off label use [Unknown]
